FAERS Safety Report 7012279-0 (Version None)
Quarter: 2010Q3

REPORT INFORMATION
  Report Type: 
  Country: None (occurrence: None)
  Receive Date: 20100910
  Receipt Date: 20100609
  Transmission Date: 20110219
  Serious: Yes (Hospitalization)
  Sender: FDA-Public Use
  Company Number: 1000012470

PATIENT
  Age: 47 Year
  Sex: Female

DRUGS (10)
  1. CELEXA [Suspect]
     Indication: ANXIETY
     Dosage: 60 MG (60 MG, 1IN 1 D),ORAL; 40 MG (40 MG, 1 IN 1 D) , ORAL
     Route: 048
     Dates: start: 20091001, end: 20100501
  2. CELEXA [Suspect]
     Indication: DEPRESSION
     Dosage: 60 MG (60 MG, 1IN 1 D),ORAL; 40 MG (40 MG, 1 IN 1 D) , ORAL
     Route: 048
     Dates: start: 20091001, end: 20100501
  3. CELEXA [Suspect]
     Indication: ANXIETY
     Dosage: 60 MG (60 MG, 1IN 1 D),ORAL; 40 MG (40 MG, 1 IN 1 D) , ORAL
     Route: 048
     Dates: start: 20100501
  4. CELEXA [Suspect]
     Indication: DEPRESSION
     Dosage: 60 MG (60 MG, 1IN 1 D),ORAL; 40 MG (40 MG, 1 IN 1 D) , ORAL
     Route: 048
     Dates: start: 20100501
  5. POTASSIUM (10 MILLIEGUIVALENTS, TABLETS) [Concomitant]
  6. TRAZODONE (50 MILLIGRAM, TABLETS) [Concomitant]
  7. LEVOTHYROXINE (112 MICROGRAM, TABLETS) [Concomitant]
  8. ALPRAZOLAM (1 MILLIGRAM, TABLETS) [Concomitant]
  9. PERCOCET [Concomitant]
  10. VITAMINS [Concomitant]

REACTIONS (3)
  - DEPRESSION [None]
  - DRUG INEFFECTIVE [None]
  - SUICIDAL IDEATION [None]
